FAERS Safety Report 5384924-7 (Version None)
Quarter: 2007Q3

REPORT INFORMATION
  Report Type: 
  Country: None (occurrence: None)
  Receive Date: 20070709
  Receipt Date: 20070627
  Transmission Date: 20080115
  Serious: Yes (Hospitalization)
  Sender: FDA-Public Use
  Company Number: 07-001393

PATIENT
  Sex: Female

DRUGS (1)
  1. LOESTRIN 24 FE [Suspect]
     Dosage: 20/1000 UG, QD, ORAL
     Route: 048
     Dates: start: 20070501

REACTIONS (2)
  - GASTROENTERITIS [None]
  - METRORRHAGIA [None]
